FAERS Safety Report 6553697-4 (Version None)
Quarter: 2010Q1

REPORT INFORMATION
  Report Type: 
  Country: None (occurrence: None)
  Receive Date: 20100127
  Receipt Date: 20100122
  Transmission Date: 20100710
  Serious: Yes (Death)
  Sender: FDA-Public Use
  Company Number: PHHY2010JP03304

PATIENT
  Sex: Male
  Weight: 62 kg

DRUGS (12)
  1. DIOVAN [Suspect]
     Indication: HYPERTENSION
     Dosage: 40 MG, QD
     Route: 048
     Dates: start: 20080606, end: 20081223
  2. LANDEL [Concomitant]
     Indication: HYPERTENSION
     Dosage: 20 MG, UNK
     Route: 048
     Dates: start: 20080408, end: 20081223
  3. LASIX [Concomitant]
     Indication: HYPERTENSION
     Dosage: 20 MG, UNK
     Route: 048
     Dates: start: 20080408, end: 20081223
  4. LONGES [Concomitant]
     Indication: HYPERTENSION
     Dosage: 10 MG, UNK
     Route: 048
     Dates: start: 20080408, end: 20081223
  5. ARTIST [Concomitant]
     Indication: HYPERTENSION
     Dosage: 5 MG, UNK
     Route: 048
     Dates: start: 20080408, end: 20081223
  6. ASPIRIN [Concomitant]
     Dosage: 100 MG, UNK
     Route: 048
     Dates: start: 20080408, end: 20081223
  7. PLAVIX [Concomitant]
     Dosage: 75 MG, UNK
     Route: 048
     Dates: start: 20080408, end: 20081223
  8. LIPITOR [Concomitant]
     Dosage: 20 MG, UNK
     Route: 048
  9. PARIET [Concomitant]
     Dosage: 10 MG, UNK
     Route: 048
  10. PRORENAL [Concomitant]
     Dosage: 15 UG, UNK
     Route: 048
  11. NITROGLYCERIN [Concomitant]
     Dosage: 5 MG, UNK
     Route: 062
  12. MAGNESIUM OXIDE [Concomitant]
     Dosage: 0.5 MG, UNK
     Route: 048

REACTIONS (1)
  - DEATH [None]
